FAERS Safety Report 11821452 (Version 3)
Quarter: 2016Q1

REPORT INFORMATION
  Report Type: Spontaneous
  Country: US (occurrence: US)
  Receive Date: 20151210
  Receipt Date: 20160105
  Transmission Date: 20160525
  Serious: Yes (Other)
  Sender: FDA-Public Use
  Company Number: US-PFIZER INC-2015436429

PATIENT
  Age: 71 Year
  Sex: Female
  Weight: 86 kg

DRUGS (1)
  1. ADVIL ALLERGY AND CONGESTION RELIEF [Suspect]
     Active Substance: CHLORPHENIRAMINE MALEATE\IBUPROFEN\PHENYLEPHRINE HYDROCHLORIDE
     Dosage: 3 DF, DAILY
     Dates: start: 20151203, end: 201512

REACTIONS (4)
  - Feeling abnormal [Recovered/Resolved]
  - Eye swelling [Recovered/Resolved]
  - Memory impairment [Recovered/Resolved]
  - Brain neoplasm [Unknown]

NARRATIVE: CASE EVENT DATE: 201512
